FAERS Safety Report 24652048 (Version 2)
Quarter: 2025Q3

REPORT INFORMATION
  Report Type: Spontaneous
  Country: CA (occurrence: CA)
  Receive Date: 20241122
  Receipt Date: 20250802
  Transmission Date: 20251020
  Serious: Yes (Hospitalization)
  Sender: ALEXION PHARMACEUTICALS
  Company Number: 001114101

PATIENT
  Age: 46 Year
  Sex: Male

DRUGS (4)
  1. ROSUVASTATIN [Suspect]
     Active Substance: ROSUVASTATIN
     Indication: Dyslipidaemia
     Route: 065
  2. LITHIUM [Suspect]
     Active Substance: LITHIUM
     Indication: Mania
     Dosage: 1800 MILLIGRAM, QD
     Route: 065
  3. PSYLLIUM [Suspect]
     Active Substance: PLANTAGO SEED
     Indication: Decreased appetite
     Route: 065
  4. A.vogel multivitamin [Concomitant]

REACTIONS (3)
  - Abnormal behaviour [Recovering/Resolving]
  - Herbal interaction [Recovering/Resolving]
  - Job change [Recovering/Resolving]
